FAERS Safety Report 4949543-2 (Version None)
Quarter: 2006Q1

REPORT INFORMATION
  Report Type: 
  Country: None (occurrence: None)
  Receive Date: 20060316
  Receipt Date: 20060303
  Transmission Date: 20060701
  Serious: Yes (Other)
  Sender: FDA-Public Use
  Company Number: 2006031911

PATIENT
  Age: 29 Year
  Sex: Female
  Weight: 49.8957 kg

DRUGS (1)
  1. NEOSPORIN [Suspect]
     Indication: CHAPPED LIPS
     Dosage: 8 TO 10 TIMES, TOPICAL
     Route: 061
     Dates: start: 20060301, end: 20060301

REACTIONS (5)
  - LIP BLISTER [None]
  - ORAL PAIN [None]
  - SCAB [None]
  - SWELLING FACE [None]
  - SWOLLEN TONGUE [None]
